FAERS Safety Report 18762295 (Version 1)
Quarter: 2021Q1

REPORT INFORMATION
  Report Type: Spontaneous
  Country: US (occurrence: US)
  Receive Date: 20210119
  Receipt Date: 20210119
  Transmission Date: 20210419
  Serious: Yes (Hospitalization)
  Sender: FDA-Public Use
  Company Number: None

PATIENT
  Age: 30 Year
  Sex: Male

DRUGS (7)
  1. CIPROFLOXACIN. [Concomitant]
     Active Substance: CIPROFLOXACIN
  2. HUMIRA [Suspect]
     Active Substance: ADALIMUMAB
     Indication: CROHN^S DISEASE
     Dosage: ?          OTHER FREQUENCY:EVERY 14 DAYS;?
     Route: 058
  3. BUPROPION. [Concomitant]
     Active Substance: BUPROPION
  4. TREXALL [Concomitant]
     Active Substance: METHOTREXATE SODIUM
  5. METHOTREXATE. [Concomitant]
     Active Substance: METHOTREXATE
  6. BUSPIRONE [Concomitant]
     Active Substance: BUSPIRONE HYDROCHLORIDE
  7. FOLIC ACID. [Concomitant]
     Active Substance: FOLIC ACID

REACTIONS (2)
  - Product dose omission issue [None]
  - Condition aggravated [None]

NARRATIVE: CASE EVENT DATE: 20201224
